FAERS Safety Report 11616899 (Version 3)
Quarter: 2015Q4

REPORT INFORMATION
  Report Type: Spontaneous
  Country: AU (occurrence: AU)
  Receive Date: 20151009
  Receipt Date: 20151215
  Transmission Date: 20160304
  Serious: Yes (Other)
  Sender: FDA-Public Use
  Company Number: AU-PFIZER INC-2015334081

PATIENT
  Sex: Female

DRUGS (2)
  1. ZESTRIL [Concomitant]
     Active Substance: LISINOPRIL
     Dosage: 10 MG, DAILY
     Dates: start: 2007
  2. LYRICA [Suspect]
     Active Substance: PREGABALIN
     Indication: NEURALGIA
     Dosage: 75 MG, 1X/DAY
     Dates: start: 20150513

REACTIONS (19)
  - Suicidal ideation [Recovered/Resolved]
  - Myocardial infarction [Unknown]
  - Aggression [Unknown]
  - Memory impairment [Recovered/Resolved]
  - Crying [Recovered/Resolved]
  - Depression [Recovered/Resolved]
  - Confusional state [Unknown]
  - Irritability [Unknown]
  - Feeling hot [Unknown]
  - Sinus disorder [Unknown]
  - Withdrawal syndrome [Recovered/Resolved]
  - Weight increased [Recovered/Resolved]
  - Dizziness [Unknown]
  - Disturbance in attention [Unknown]
  - Cough [Unknown]
  - Personality change [Recovered/Resolved]
  - Joint swelling [Unknown]
  - Pruritus [Recovered/Resolved]
  - Repetitive speech [Recovered/Resolved]
